FAERS Safety Report 14695347 (Version 1)
Quarter: 2018Q1

REPORT INFORMATION
  Report Type: Spontaneous
  Country: US (occurrence: US)
  Receive Date: 20180329
  Receipt Date: 20180329
  Transmission Date: 20180509
  Serious: Yes (Other)
  Sender: FDA-Public Use
  Company Number: US-TEVA-2018-US-874819

PATIENT
  Age: 71 Year
  Sex: Male

DRUGS (2)
  1. AMIODARONE [Suspect]
     Active Substance: AMIODARONE
     Route: 065
  2. APIXABAN [Concomitant]
     Active Substance: APIXABAN
     Indication: ANTICOAGULANT THERAPY
     Route: 048

REACTIONS (3)
  - Liver disorder [Not Recovered/Not Resolved]
  - Hepatic congestion [Not Recovered/Not Resolved]
  - Portal vein thrombosis [Not Recovered/Not Resolved]
